FAERS Safety Report 11986596 (Version 1)
Quarter: 2016Q1

REPORT INFORMATION
  Report Type: Spontaneous
  Country: US (occurrence: US)
  Receive Date: 20160202
  Receipt Date: 20160202
  Transmission Date: 20160526
  Serious: Yes (Other)
  Sender: FDA-Public Use
  Company Number: US-UCBSA-2014009500

PATIENT
  Age: 21 Year
  Sex: Male
  Weight: 108.9 kg

DRUGS (9)
  1. KEPPRA [Suspect]
     Active Substance: LEVETIRACETAM
     Dosage: DAILY DOSE: 1000 MG
     Route: 048
     Dates: start: 201312
  2. KEPPRA [Suspect]
     Active Substance: LEVETIRACETAM
     Dosage: DAILY DOSE: 2200 MG
     Dates: start: 2014, end: 2014
  3. KEPPRA [Suspect]
     Active Substance: LEVETIRACETAM
     Indication: FRONTAL LOBE EPILEPSY
     Dosage: DAILY DOSE: 750MG
     Route: 048
     Dates: start: 201311, end: 2013
  4. KEPPRA [Suspect]
     Active Substance: LEVETIRACETAM
     Dosage: DAILY DOSE: 1000 MG
     Route: 048
     Dates: start: 201402, end: 2014
  5. KEPPRA [Suspect]
     Active Substance: LEVETIRACETAM
     Dosage: 1000 MG, 2X/DAY (BID)
     Dates: start: 201404
  6. KEPPRA [Suspect]
     Active Substance: LEVETIRACETAM
     Dosage: 2250 MG; 750 MG IN THE MORNING AND 1500 MG AT BED TIME
     Dates: start: 201410
  7. KEPPRA [Suspect]
     Active Substance: LEVETIRACETAM
     Dosage: 2500 MG; 750 MG IN THE AM AND 1750 MG IN PM
  8. KEPPRA [Suspect]
     Active Substance: LEVETIRACETAM
     Dosage: DAILY DOSE: 750 MG
     Dates: start: 201401, end: 2014
  9. KEPPRA [Suspect]
     Active Substance: LEVETIRACETAM
     Dosage: 750 MG, 2X/DAY (BID)
     Dates: start: 201403, end: 2014

REACTIONS (16)
  - Nausea [Recovered/Resolved]
  - Partial seizures [Unknown]
  - Drug ineffective [Unknown]
  - Weight decreased [Not Recovered/Not Resolved]
  - Hypersomnia [Not Recovered/Not Resolved]
  - Nasopharyngitis [Recovered/Resolved]
  - Petit mal epilepsy [Not Recovered/Not Resolved]
  - Somnolence [Recovered/Resolved]
  - Vomiting [Recovered/Resolved]
  - Lethargy [Recovered/Resolved]
  - Generalised tonic-clonic seizure [Not Recovered/Not Resolved]
  - Fatigue [Recovered/Resolved]
  - Dizziness [Recovered/Resolved]
  - Poor quality sleep [Recovered/Resolved]
  - Drug dose omission [Unknown]
  - Somnambulism [Recovered/Resolved]

NARRATIVE: CASE EVENT DATE: 201311
